FAERS Safety Report 5908203-1 (Version None)
Quarter: 2008Q4

REPORT INFORMATION
  Report Type: 
  Country: None (occurrence: None)
  Receive Date: 20081006
  Receipt Date: 20080924
  Transmission Date: 20090506
  Serious: Yes (Hospitalization)
  Sender: FDA-Public Use
  Company Number: FR-RANBAXY-2008RR-18304

PATIENT
  Age: 109 Year
  Sex: Female

DRUGS (5)
  1. GABAPENTIN [Suspect]
     Dosage: 400 MG, QD
  2. CARBAMAZEPINE [Suspect]
     Indication: TRIGEMINAL NEURALGIA
     Dosage: 400 MG, QD
  3. PREGABALIN [Suspect]
     Dosage: 300 MG, QD
  4. OXCARBAZEPINE [Suspect]
     Dosage: 450 MG, QD
  5. OXCARBAZEPINE [Suspect]
     Dosage: 100 MG, QD

REACTIONS (4)
  - BRADYCARDIA [None]
  - DELIRIUM [None]
  - HYPONATRAEMIA [None]
  - NERVOUS SYSTEM DISORDER [None]
